FAERS Safety Report 4438382-7 (Version None)
Quarter: 2004Q3

REPORT INFORMATION
  Report Type: 
  Country: None (occurrence: None)
  Receive Date: 20040831
  Receipt Date: 20040730
  Transmission Date: 20050211
  Serious: No
  Sender: FDA-Public Use
  Company Number: US-GLAXOSMITHKLINE-A0520373A

PATIENT
  Age: 56 Year

DRUGS (4)
  1. WELLBUTRIN XL [Suspect]
     Indication: ILL-DEFINED DISORDER
     Dosage: 600MG SINGLE DOSE
     Route: 048
     Dates: start: 20040730
  2. CONCERTA [Concomitant]
  3. RITALIN [Concomitant]
  4. KLONOPIN [Concomitant]

REACTIONS (2)
  - OVERDOSE [None]
  - TREMOR [None]
